FAERS Safety Report 12321258 (Version 1)
Quarter: 2016Q2

REPORT INFORMATION
  Report Type: Report from Study
  Country: JP (occurrence: JP)
  Receive Date: 20160502
  Receipt Date: 20160502
  Transmission Date: 20160815
  Serious: Yes (Life-Threatening)
  Sender: FDA-Public Use
  Company Number: JP-ACCORD-039991

PATIENT
  Sex: Male

DRUGS (3)
  1. BETAMETHASONE. [Concomitant]
     Active Substance: BETAMETHASONE
     Dosage: DAY 1 OF EACH COURSE, AND IN DAY 1 OF FOLLOWING COURSES
  2. FOLINIC ACID [Concomitant]
     Active Substance: LEUCOVORIN
     Dosage: REPEATED EVERY 2 WEEKS
  3. METHOTREXATE [Suspect]
     Active Substance: METHOTREXATE
     Indication: CENTRAL NERVOUS SYSTEM LYMPHOMA
     Dosage: 3.5 GM/M2
     Route: 042

REACTIONS (1)
  - Cardiac failure [Unknown]
